FAERS Safety Report 9031770 (Version 1)
Quarter: 2013Q1

REPORT INFORMATION
  Report Type: Spontaneous
  Country: US (occurrence: US)
  Receive Date: 20130124
  Receipt Date: 20130124
  Transmission Date: 20140127
  Serious: Yes (Hospitalization, Other)
  Sender: FDA-Public Use
  Company Number: US-PFIZER INC-2013022364

PATIENT
  Age: 34 Year
  Sex: Male

DRUGS (5)
  1. PHENYTOIN [Suspect]
     Dosage: UNK
     Route: 048
  2. LISINOPRIL [Suspect]
     Dosage: 5 MG, DAILY
     Route: 048
  3. LEVETIRACETAM [Concomitant]
     Dosage: 2000 MG, 2X/DAY
     Route: 048
  4. DEXAMETHASONE SODIUM PHOSPHATE [Concomitant]
     Dosage: 4 MG, 2X/DAY (SINCE CRANIOTOMY)
     Route: 048
  5. ACETAMINOPHEN [Concomitant]
     Dosage: UNK

REACTIONS (2)
  - Drug reaction with eosinophilia and systemic symptoms [Recovering/Resolving]
  - Angioedema [Recovering/Resolving]
